FAERS Safety Report 9739401 (Version 1)
Quarter: 2013Q4

REPORT INFORMATION
  Report Type: Spontaneous
  Country: US (occurrence: US)
  Receive Date: 20131209
  Receipt Date: 20131209
  Transmission Date: 20140711
  Serious: No
  Sender: FDA-Public Use
  Company Number: US-BRISTOL-MYERS SQUIBB COMPANY-17286071

PATIENT
  Age: 65 Year
  Sex: 0

DRUGS (1)
  1. IXEMPRA [Suspect]
     Dates: start: 201301

REACTIONS (1)
  - Chest pain [Unknown]
